FAERS Safety Report 9989156 (Version 1)
Quarter: 2014Q1

REPORT INFORMATION
  Report Type: Spontaneous
  Country: US (occurrence: US)
  Receive Date: 20140310
  Receipt Date: 20140310
  Transmission Date: 20141002
  Serious: Yes (Hospitalization)
  Sender: FDA-Public Use
  Company Number: US-SA-2014SA028677

PATIENT
  Age: 68 Year
  Sex: Male

DRUGS (1)
  1. LANTUS [Suspect]
     Indication: DIABETES MELLITUS
     Dosage: 2 UNITS IN THE MORNING AND 100 UNITS AT NIGHT.
     Route: 058

REACTIONS (4)
  - Depression [Recovered/Resolved]
  - Suicidal ideation [Recovered/Resolved]
  - Blood glucose increased [Recovered/Resolved]
  - Stress [Not Recovered/Not Resolved]
